FAERS Safety Report 15548547 (Version 1)
Quarter: 2018Q4

REPORT INFORMATION
  Report Type: Spontaneous
  Country: US (occurrence: US)
  Receive Date: 20181025
  Receipt Date: 20181025
  Transmission Date: 20190205
  Serious: Yes (Other)
  Sender: FDA-Public Use
  Company Number: US-ROCHE-2203265

PATIENT
  Sex: Female
  Weight: 79.45 kg

DRUGS (6)
  1. OCREVUS [Suspect]
     Active Substance: OCRELIZUMAB
     Indication: RELAPSING-REMITTING MULTIPLE SCLEROSIS
     Route: 041
     Dates: start: 20171101
  2. BACLOFEN. [Concomitant]
     Active Substance: BACLOFEN
     Dosage: 1 TABLET 4 TIMES A DAY ;ONGOING: UNKNOWN
     Route: 065
  3. OXYBUTIN [Concomitant]
     Active Substance: OXYBUTYNIN
     Dosage: 1 TABLET A DAY ;ONGOING: UNKNOWN
     Route: 065
  4. OCREVUS [Suspect]
     Active Substance: OCRELIZUMAB
     Route: 042
     Dates: start: 20180620
  5. ATORVASTATIN [Concomitant]
     Active Substance: ATORVASTATIN
     Dosage: ONGOING: UNKNOWN
     Route: 065
  6. GABAPENTIN. [Concomitant]
     Active Substance: GABAPENTIN
     Dosage: ONGOING: UNKNOWN
     Route: 065

REACTIONS (1)
  - Intraductal proliferative breast lesion [Unknown]
